FAERS Safety Report 4675619-3 (Version None)
Quarter: 2005Q2

REPORT INFORMATION
  Report Type: 
  Country: None (occurrence: None)
  Receive Date: 20050527
  Receipt Date: 20050517
  Transmission Date: 20051028
  Serious: Yes (Hospitalization)
  Sender: FDA-Public Use
  Company Number: 200511636FR

PATIENT
  Age: 77 Year
  Sex: Male
  Weight: 97 kg

DRUGS (12)
  1. AMARYL [Suspect]
     Indication: DIABETES MELLITUS NON-INSULIN-DEPENDENT
     Route: 048
     Dates: end: 20050406
  2. CIPROFLOXACIN [Suspect]
     Indication: HAEMATURIA
     Route: 048
     Dates: start: 20050403, end: 20050406
  3. CIPROFLOXACIN [Suspect]
     Indication: PYREXIA
     Route: 048
     Dates: start: 20050403, end: 20050406
  4. GLUCOPHAGE [Concomitant]
     Indication: DIABETES MELLITUS NON-INSULIN-DEPENDENT
     Dosage: DOSE UNIT: UNITS
     Route: 048
  5. LASILIX 40 MG [Concomitant]
     Route: 048
  6. TRIATEC [Concomitant]
     Route: 048
  7. GLUCOR [Concomitant]
     Route: 048
     Dates: end: 20050406
  8. NICARDIPINE HCL [Concomitant]
     Route: 048
  9. BEFIZAL [Concomitant]
     Route: 048
  10. ALLOPURINOL [Concomitant]
     Route: 048
  11. SINTROM [Concomitant]
     Route: 048
  12. SERETIDE [Concomitant]
     Route: 055

REACTIONS (7)
  - BLOOD PRESSURE INCREASED [None]
  - FALL [None]
  - HAEMATURIA [None]
  - HEART RATE DECREASED [None]
  - HYPOGLYCAEMIA [None]
  - LOSS OF CONSCIOUSNESS [None]
  - PYREXIA [None]
